FAERS Safety Report 12600970 (Version 1)
Quarter: 2016Q3

REPORT INFORMATION
  Report Type: Spontaneous
  Country: GB (occurrence: GB)
  Receive Date: 20160728
  Receipt Date: 20160728
  Transmission Date: 20161109
  Serious: Yes (Other)
  Sender: FDA-Public Use
  Company Number: GB-BAXTER-2016BAX035790

PATIENT
  Sex: Female
  Weight: 46.2 kg

DRUGS (18)
  1. SODIUM CHLORIDE 0.9% INTRAVENOUS INFUSION BP [Suspect]
     Active Substance: SODIUM CHLORIDE
     Indication: MEDICATION DILUTION
     Dosage: 2 SYRINGES THREE TIMES A DAY (EACH SYRINGE 25ML)
     Route: 040
     Dates: start: 20160627, end: 20160702
  2. PIPERACILLIN/TAZOBACTAM [Suspect]
     Active Substance: PIPERACILLIN SODIUM\TAZOBACTAM SODIUM
     Indication: INFECTION
     Dosage: 2 SYRINGES THREE TIMES A DAY (2250MG IN EACH SYRINGE)
     Route: 040
     Dates: start: 20160627, end: 20160702
  3. PIPERACILLIN/TAZOBACTAM [Suspect]
     Active Substance: PIPERACILLIN SODIUM\TAZOBACTAM SODIUM
     Indication: CONDITION AGGRAVATED
     Route: 065
  4. SODIUM CHLORIDE 7% [Concomitant]
     Active Substance: SODIUM CHLORIDE
     Indication: INCREASED VISCOSITY OF BRONCHIAL SECRETION
     Dosage: NEBS
     Route: 055
  5. SODIUM CHLORIDE 0.9% INTRAVENOUS INFUSION BP [Suspect]
     Active Substance: SODIUM CHLORIDE
     Indication: CATHETER MANAGEMENT
     Dosage: PRE AND POST ANTIBIOTIC (ONLY WHILEST ON IVS)
     Route: 042
     Dates: start: 20160627
  6. TOBRAMYCIN. [Suspect]
     Active Substance: TOBRAMYCIN
     Indication: INFECTION
  7. VITAMIN E [Concomitant]
     Active Substance: .ALPHA.-TOCOPHEROL
     Indication: VITAMIN SUPPLEMENTATION
     Dosage: MORE THAN 10 YEARS
     Route: 048
  8. SALBUTAMOL [Concomitant]
     Active Substance: ALBUTEROL
     Indication: DYSPNOEA
     Dosage: 1-2 DOSAGE FORMS INHALATIONS
     Route: 055
  9. SYMBICORT [Concomitant]
     Active Substance: BUDESONIDE\FORMOTEROL FUMARATE DIHYDRATE
     Indication: WHEEZING
     Dosage: 200/6 (UNITS NOT REPORTED), 1 DOSAGE FORM
     Route: 055
  10. CALCICHEW D3 [Concomitant]
     Active Substance: CALCIUM\CHOLECALCIFEROL
     Indication: VITAMIN SUPPLEMENTATION
     Dosage: 2 DOSAGE FORMS
     Route: 048
  11. TOBI PODHALER [Concomitant]
     Active Substance: TOBRAMYCIN
     Indication: PRODUCT USED FOR UNKNOWN INDICATION
     Dosage: ON ALTERNATE MONTHS BUT WERE WITHHELD WHILST THE PATIENT WAS ON IV ANTIBIOTICS
     Route: 065
  12. DORNASE ALFA [Concomitant]
     Active Substance: DORNASE ALFA
     Indication: INCREASED VISCOSITY OF BRONCHIAL SECRETION
     Dosage: NEBULISED
     Route: 055
  13. CREON [Concomitant]
     Active Substance: PANCRELIPASE AMYLASE\PANCRELIPASE LIPASE\PANCRELIPASE PROTEASE
     Indication: MALABSORPTION
     Dosage: 10,000 (UNITS NOT REPORTED), 1-5 DOSAGE FORMS WITH ALL MEALS AND SNACKS
     Route: 065
  14. TOBRAMYCIN. [Suspect]
     Active Substance: TOBRAMYCIN
     Indication: CONDITION AGGRAVATED
     Route: 042
     Dates: start: 20160627
  15. VITAMINS BPC [Concomitant]
     Indication: VITAMIN SUPPLEMENTATION
     Dosage: 3 DOSAGE FORMS, MORE THAN 10 YEARS
     Route: 048
  16. VITAMIN K [Concomitant]
     Active Substance: PHYTONADIONE
     Indication: VITAMIN SUPPLEMENTATION
     Dosage: MORE THAN 2 YEARS
     Route: 048
  17. OMEPRAZOLE. [Concomitant]
     Active Substance: OMEPRAZOLE
     Indication: GASTROOESOPHAGEAL REFLUX DISEASE
     Route: 048
  18. COLOMYCIN [Concomitant]
     Active Substance: COLISTIN
     Indication: PRODUCT USED FOR UNKNOWN INDICATION
     Dosage: 1 MU, NEBS, ON ALTERNATE MONTHS BUT WERE WITHHELD WHILST THE PATIENT WAS ON IV ANTIBIOTICS
     Route: 055

REACTIONS (2)
  - Rash [Recovering/Resolving]
  - General physical condition abnormal [Unknown]
